FAERS Safety Report 25247074 (Version 1)
Quarter: 2025Q2

REPORT INFORMATION
  Report Type: Spontaneous
  Country: ES (occurrence: ES)
  Receive Date: 20250428
  Receipt Date: 20250428
  Transmission Date: 20250717
  Serious: Yes (Death)
  Sender: AMGEN
  Company Number: ES-AMGEN-ESPSP2025080640

PATIENT

DRUGS (2)
  1. CINACALCET HYDROCHLORIDE [Suspect]
     Active Substance: CINACALCET HYDROCHLORIDE
     Indication: Product used for unknown indication
     Route: 065
  2. IRON [Concomitant]
     Active Substance: IRON
     Route: 065

REACTIONS (5)
  - Death [Fatal]
  - Hepatic cancer [Fatal]
  - Neoplasm malignant [Fatal]
  - Colon cancer [Fatal]
  - Pneumonia [Fatal]
